FAERS Safety Report 8307691-3 (Version None)
Quarter: 2012Q2

REPORT INFORMATION
  Report Type: 
  Country: None (occurrence: None)
  Receive Date: 20120424
  Receipt Date: 20120424
  Transmission Date: 20120825
  Serious: Yes (Death)
  Sender: FDA-Public Use
  Company Number: None

PATIENT
  Age: 88 Year
  Sex: Female
  Weight: 52.616 kg

DRUGS (1)
  1. PRADAXA [Suspect]
     Indication: CEREBROVASCULAR ACCIDENT PROPHYLAXIS
     Dosage: 150 MG
     Route: 048
     Dates: start: 20120330, end: 20120331

REACTIONS (6)
  - BLOOD PRESSURE DECREASED [None]
  - FAECES DISCOLOURED [None]
  - GASTRIC HAEMORRHAGE [None]
  - GENERAL PHYSICAL CONDITION ABNORMAL [None]
  - OFF LABEL USE [None]
  - MYOCARDIAL INFARCTION [None]
